FAERS Safety Report 10483019 (Version 1)
Quarter: 2014Q3

REPORT INFORMATION
  Report Type: Spontaneous
  Country: DE (occurrence: DE)
  Receive Date: 20140929
  Receipt Date: 20140929
  Transmission Date: 20150326
  Serious: Yes (Other)
  Sender: FDA-Public Use
  Company Number: DE-AUROBINDO-AUR-APL-2014-10087

PATIENT
  Age: 74 Year
  Sex: Female
  Weight: 70 kg

DRUGS (1)
  1. METOPROLOL [Suspect]
     Active Substance: METOPROLOL
     Indication: MYOCARDIAL INFARCTION
     Dosage: 2X47.5 MG, TWO TIMES A DAY
     Route: 048
     Dates: start: 20111201

REACTIONS (3)
  - Cardiac disorder [Unknown]
  - Weight increased [Recovered/Resolved with Sequelae]
  - Gastric disorder [Unknown]

NARRATIVE: CASE EVENT DATE: 20120101
